FAERS Safety Report 5281607-9 (Version None)
Quarter: 2007Q1

REPORT INFORMATION
  Report Type: 
  Country: None (occurrence: None)
  Receive Date: 20070330
  Receipt Date: 20070319
  Transmission Date: 20070707
  Serious: Yes (Other)
  Sender: FDA-Public Use
  Company Number: PHEH2006US12472

PATIENT
  Age: 82 Year
  Sex: Male
  Weight: 90.249 kg

DRUGS (5)
  1. ZOMETA [Suspect]
     Indication: METASTASES TO BONE
     Dosage: 4 MG MONTHLY
     Dates: start: 20051014, end: 20060622
  2. CALCITRIOL [Concomitant]
  3. LUPRON [Concomitant]
     Indication: PROSTATE CANCER METASTATIC
     Dosage: MONTHLY
  4. VITAMIN CAP [Concomitant]
  5. CALCIUM CARBONATE [Concomitant]

REACTIONS (19)
  - BACK PAIN [None]
  - BONE DISORDER [None]
  - DENTAL CARIES [None]
  - DENTAL OPERATION [None]
  - GINGIVAL SWELLING [None]
  - GINGIVITIS [None]
  - IMPAIRED HEALING [None]
  - MOUTH ULCERATION [None]
  - MUCOSAL INFLAMMATION [None]
  - OEDEMA [None]
  - OSTEOARTHRITIS [None]
  - OSTEOMYELITIS [None]
  - OSTEONECROSIS [None]
  - PAIN [None]
  - PRIMARY SEQUESTRUM [None]
  - TOOTH EXTRACTION [None]
  - TOOTH LOSS [None]
  - VARICOSE VEIN [None]
  - WEIGHT DECREASED [None]
